FAERS Safety Report 24795149 (Version 1)
Quarter: 2024Q4

REPORT INFORMATION
  Report Type: Spontaneous
  Country: JP (occurrence: JP)
  Receive Date: 20241231
  Receipt Date: 20241231
  Transmission Date: 20250114
  Serious: Yes (Other)
  Sender: NOVARTIS
  Company Number: JP-002147023-NVSC2024JP245817

PATIENT
  Age: 18 Month
  Sex: Female

DRUGS (3)
  1. CYCLOSPORINE [Suspect]
     Active Substance: CYCLOSPORINE
     Indication: Autoimmune lymphoproliferative syndrome
     Dosage: UNK
     Route: 065
  2. MERCAPTOPURINE [Suspect]
     Active Substance: MERCAPTOPURINE
     Indication: Autoimmune lymphoproliferative syndrome
     Dosage: UNK
     Route: 065
  3. PREDNISOLONE [Suspect]
     Active Substance: PREDNISOLONE
     Indication: Autoimmune lymphoproliferative syndrome
     Dosage: UNK
     Route: 065

REACTIONS (6)
  - Cytopenia [Unknown]
  - Pneumonia [Unknown]
  - Hepatosplenomegaly [Unknown]
  - Otitis media [Unknown]
  - Pharyngeal mass [Unknown]
  - Drug ineffective for unapproved indication [Unknown]
